FAERS Safety Report 5375654-6 (Version None)
Quarter: 2007Q2

REPORT INFORMATION
  Report Type: 
  Country: None (occurrence: None)
  Receive Date: 20070629
  Receipt Date: 20070604
  Transmission Date: 20071010
  Serious: Yes (Other)
  Sender: FDA-Public Use
  Company Number: FR-PFIZER INC-2007052187

PATIENT
  Age: 82 Year
  Sex: Male

DRUGS (2)
  1. ZOXAN LP [Suspect]
     Indication: ADENOMA BENIGN
     Dates: start: 20070101, end: 20070101
  2. ALL OTHER THERAPEUTIC PRODUCTS [Concomitant]

REACTIONS (1)
  - DIVERTICULITIS [None]
